FAERS Safety Report 23040239 (Version 1)
Quarter: 2023Q4

REPORT INFORMATION
  Report Type: Spontaneous
  Country: FR (occurrence: FR)
  Receive Date: 20231006
  Receipt Date: 20231006
  Transmission Date: 20240110
  Serious: Yes (Death, Other)
  Sender: FDA-Public Use
  Company Number: None

PATIENT
  Age: 74 Year
  Sex: Female
  Weight: 93 kg

DRUGS (9)
  1. METRONIDAZOLE [Suspect]
     Active Substance: METRONIDAZOLE
     Indication: Pleurisy
     Dosage: 1500 MILLIGRAM (MG) ONCE IN A DAY
     Route: 042
     Dates: start: 20230821, end: 20230830
  2. LINEZOLID [Suspect]
     Active Substance: LINEZOLID
     Indication: Pleurisy
     Dosage: 1200 MILLIGRAM (MG) ONCE IN A DAY
     Route: 042
     Dates: start: 20230821, end: 20230828
  3. CARVEDILOL [Concomitant]
     Active Substance: CARVEDILOL
     Route: 065
  4. RIVAROXABAN [Concomitant]
     Active Substance: RIVAROXABAN
     Route: 065
  5. POTASSIUM CHLORIDE [Concomitant]
     Active Substance: POTASSIUM CHLORIDE
     Route: 065
  6. URSODIOL [Concomitant]
     Active Substance: URSODIOL
     Route: 065
  7. SPIRONOLACTONE [Concomitant]
     Active Substance: SPIRONOLACTONE
     Route: 065
  8. FUROSEMIDE [Concomitant]
     Active Substance: FUROSEMIDE
     Route: 065
  9. EMPAGLIFLOZIN [Concomitant]
     Active Substance: EMPAGLIFLOZIN
     Route: 065

REACTIONS (2)
  - Septic shock [Fatal]
  - Neutropenia [Fatal]

NARRATIVE: CASE EVENT DATE: 20230827
